FAERS Safety Report 7808351-5 (Version None)
Quarter: 2011Q4

REPORT INFORMATION
  Report Type: 
  Country: None (occurrence: None)
  Receive Date: 20111012
  Receipt Date: 20111004
  Transmission Date: 20120403
  Serious: Yes (Disabling)
  Sender: FDA-Public Use
  Company Number: US-ELI_LILLY_AND_COMPANY-US201110001608

PATIENT
  Sex: Female

DRUGS (4)
  1. ILETIN [Suspect]
     Indication: TYPE 1 DIABETES MELLITUS
     Dosage: UNK
     Dates: start: 19650101
  2. HUMALOG [Suspect]
     Indication: TYPE 1 DIABETES MELLITUS
     Dosage: 30 U, TID
     Dates: start: 20090101
  3. LEVEMIR [Concomitant]
     Dosage: 100 U, EACH EVENING
  4. DULOXETINE HYDROCHLORIDE [Suspect]
     Indication: BIPOLAR DISORDER
     Dosage: 30 MG, BID
     Route: 048

REACTIONS (6)
  - MENTAL DISORDER [None]
  - ANXIETY [None]
  - BIPOLAR DISORDER [None]
  - DEPRESSION [None]
  - VISUAL IMPAIRMENT [None]
  - FIBROMYALGIA [None]
